FAERS Safety Report 9500039 (Version 1)
Quarter: 2013Q1

REPORT INFORMATION
  Report Type: Spontaneous
  Country: US (occurrence: None)
  Receive Date: 20130107
  Receipt Date: 20130107
  Transmission Date: 20140127
  Serious: Yes (Other)
  Sender: FDA-Public Use
  Company Number: PHEH2012US023319

PATIENT
  Age: 49 Year
  Sex: Male

DRUGS (7)
  1. GILENYA (FINGOLIMOD) CAPSULE [Suspect]
     Indication: MULTIPLE SCLEROSIS
     Route: 048
     Dates: start: 201106
  2. RAMIPRIL [Concomitant]
  3. AMLODIPINE [Concomitant]
  4. BACLOFEN [Concomitant]
  5. VITAMIN D3 [Concomitant]
  6. VITAMIN B12 [Concomitant]
  7. PRAVACHOL [Concomitant]

REACTIONS (5)
  - Herpes zoster [None]
  - Gastrointestinal disorder [None]
  - Diarrhoea [None]
  - Lymphopenia [None]
  - Post herpetic neuralgia [None]
